FAERS Safety Report 6461653-X (Version None)
Quarter: 2009Q4

REPORT INFORMATION
  Report Type: 
  Country: None (occurrence: None)
  Receive Date: 20091130
  Receipt Date: 20091124
  Transmission Date: 20100525
  Serious: Yes (Disabling)
  Sender: FDA-Public Use
  Company Number: DK-BRACCO-000040

PATIENT
  Sex: Male
  Weight: 83 kg

DRUGS (2)
  1. CONTRAST MEDIA [Suspect]
     Indication: RENAL TRANSPLANT
     Route: 042
     Dates: start: 20050107, end: 20050107
  2. CONTRAST MEDIA [Suspect]
     Indication: ANGIOGRAM
     Route: 042
     Dates: start: 20050107, end: 20050107

REACTIONS (3)
  - NEPHROGENIC SYSTEMIC FIBROSIS [None]
  - PULMONARY HYPERTENSION [None]
  - RESPIRATORY FAILURE [None]
